FAERS Safety Report 6912350-5 (Version None)
Quarter: 2010Q3

REPORT INFORMATION
  Report Type: 
  Country: None (occurrence: None)
  Receive Date: 20100806
  Receipt Date: 20100730
  Transmission Date: 20110219
  Serious: Yes (Death, Disabling)
  Sender: FDA-Public Use
  Company Number: JP-MERCK-1006USA00668B1

PATIENT
  Sex: Female
  Weight: 1 kg

DRUGS (2)
  1. HYZAAR [Suspect]
     Indication: HYPERTENSION
     Route: 064
     Dates: start: 20091001, end: 20100525
  2. HYZAAR [Suspect]
     Indication: RENAL FAILURE CHRONIC
     Route: 064
     Dates: start: 20091001, end: 20100525

REACTIONS (4)
  - DEATH [None]
  - DRUG EXPOSURE DURING PREGNANCY [None]
  - PULMONARY HYPOPLASIA [None]
  - URINARY TRACT MALFORMATION [None]
